FAERS Safety Report 25260324 (Version 5)
Quarter: 2025Q4

REPORT INFORMATION
  Report Type: Report from Study
  Country: US (occurrence: US)
  Receive Date: 20250501
  Receipt Date: 20251231
  Transmission Date: 20260118
  Serious: Yes (Hospitalization)
  Sender: AVADEL CNS PHARMACEUTICALS, LLC
  Company Number: US-AVADEL CNS PHARMACEUTICALS, LLC-2025AVA01099

PATIENT
  Sex: Male
  Weight: 72.562 kg

DRUGS (9)
  1. LUMRYZ [Suspect]
     Active Substance: SODIUM OXYBATE
     Indication: Narcolepsy
     Dosage: 4.5 G, ONCE NIGHTLY
     Route: 048
     Dates: start: 2025, end: 202504
  2. LUMRYZ [Suspect]
     Active Substance: SODIUM OXYBATE
     Indication: Narcolepsy
     Dosage: 6 G, ONCE NIGHTLY
     Route: 048
     Dates: start: 202504, end: 202504
  3. LUMRYZ [Suspect]
     Active Substance: SODIUM OXYBATE
     Dosage: 6 G, ONCE NIGHTLY
     Route: 048
     Dates: start: 20250416, end: 2025
  4. LUMRYZ [Suspect]
     Active Substance: SODIUM OXYBATE
     Indication: Narcolepsy
     Dosage: 7.5 G, ONCE NIGHTLY
     Route: 048
     Dates: start: 2025, end: 2025
  5. METOPROLOL [Suspect]
     Active Substance: METOPROLOL
     Dosage: UNK (LOWER DOSAGE)
  6. METOPROLOL [Suspect]
     Active Substance: METOPROLOL
     Dosage: 100 MG, 1X/DAY
  7. MIDODRINE [Concomitant]
     Active Substance: MIDODRINE
     Dosage: 10 MG, 3X/DAY
  8. WAKIX [Concomitant]
     Active Substance: PITOLISANT HYDROCHLORIDE
     Dosage: 17.5 MG, 1X/DAY
  9. VYVANSE [Concomitant]
     Active Substance: LISDEXAMFETAMINE DIMESYLATE
     Dosage: 40 MG, 1X/DAY

REACTIONS (7)
  - Cerebrovascular accident [Unknown]
  - Alkalosis [Not Recovered/Not Resolved]
  - Blood pressure decreased [Not Recovered/Not Resolved]
  - Constipation [Unknown]
  - Enuresis [Not Recovered/Not Resolved]
  - Disorientation [Not Recovered/Not Resolved]
  - Unevaluable event [Unknown]

NARRATIVE: CASE EVENT DATE: 20250101
